FAERS Safety Report 18497903 (Version 1)
Quarter: 2020Q4

REPORT INFORMATION
  Report Type: Spontaneous
  Country: US (occurrence: US)
  Receive Date: 20201112
  Receipt Date: 20201112
  Transmission Date: 20210114
  Serious: No
  Sender: FDA-Public Use
  Company Number: US-THERAPEUTICSMD-2020TMD04431

PATIENT
  Sex: Female
  Weight: 93.42 kg

DRUGS (1)
  1. BIJUVA [Suspect]
     Active Substance: ESTRADIOL\PROGESTERONE
     Indication: DYSPAREUNIA
     Dosage: 1 CAPSULES, 1X/DAY
     Route: 048
     Dates: start: 20200604, end: 20201002

REACTIONS (5)
  - Muscle spasms [Recovering/Resolving]
  - Pain in extremity [Recovering/Resolving]
  - Sleep disorder [Recovering/Resolving]
  - Atrophy [Unknown]
  - Cervical dysplasia [Unknown]

NARRATIVE: CASE EVENT DATE: 2020
